FAERS Safety Report 9752055 (Version 2)
Quarter: 2013Q4

REPORT INFORMATION
  Report Type: Spontaneous
  Country: CA (occurrence: CA)
  Receive Date: 20131213
  Receipt Date: 20131213
  Transmission Date: 20140711
  Serious: Yes (Death, Hospitalization)
  Sender: FDA-Public Use
  Company Number: CA-AMGEN-CANSP2013061339

PATIENT
  Age: 96 Year
  Sex: Female

DRUGS (2)
  1. PROLIA [Suspect]
     Indication: OSTEOPOROSIS POSTMENOPAUSAL
     Dosage: 60 MG, UNK
     Route: 065
     Dates: start: 20130328
  2. VITAMIN B [Concomitant]
     Route: 065

REACTIONS (3)
  - Death [Fatal]
  - Abdominal pain upper [Unknown]
  - Asthenia [Unknown]
